FAERS Safety Report 5661134-7 (Version None)
Quarter: 2008Q1

REPORT INFORMATION
  Report Type: 
  Country: None (occurrence: None)
  Receive Date: 20080306
  Receipt Date: 20080225
  Transmission Date: 20080703
  Serious: Yes (Hospitalization)
  Sender: FDA-Public Use
  Company Number: A0711786A

PATIENT
  Age: 77 Year
  Sex: Female

DRUGS (3)
  1. CALCIUM CARBONATE TABLET PEPPERMINT(CALCIUM CARBONATE) [Suspect]
     Indication: HIATUS HERNIA
  2. CLOPIDOGREL BISULFATE [Concomitant]
  3. METFORMIN HYDROCHLORIDE [Concomitant]

REACTIONS (6)
  - CARDIAC FAILURE [None]
  - DIALYSIS [None]
  - FEELING ABNORMAL [None]
  - HUNGER [None]
  - RENAL FAILURE [None]
  - RENAL MASS [None]
